FAERS Safety Report 19281661 (Version 1)
Quarter: 2021Q2

REPORT INFORMATION
  Report Type: Spontaneous
  Country: JP (occurrence: JP)
  Receive Date: 20210520
  Receipt Date: 20210520
  Transmission Date: 20210717
  Serious: Yes (Hospitalization, Other)
  Sender: FDA-Public Use
  Company Number: JP-BRACCO-2021JP00963

PATIENT
  Age: 60 Year
  Sex: Male

DRUGS (1)
  1. IOPAMIRON [Suspect]
     Active Substance: IOPAMIDOL
     Indication: COMPUTERISED TOMOGRAM HEAD
     Dosage: INTRAVENOUS INJECTION OF 100 ML AT ABOUT 4 ML /SEC
     Route: 042
     Dates: start: 20210311, end: 20210311

REACTIONS (5)
  - Blood pressure decreased [Recovered/Resolved]
  - Cold sweat [Unknown]
  - Dizziness postural [Unknown]
  - Cerebral infarction [Not Recovered/Not Resolved]
  - Feeling cold [Unknown]

NARRATIVE: CASE EVENT DATE: 20210311
